FAERS Safety Report 17741498 (Version 1)
Quarter: 2020Q2

REPORT INFORMATION
  Report Type: Spontaneous
  Country: FR (occurrence: FR)
  Receive Date: 20200504
  Receipt Date: 20200504
  Transmission Date: 20200714
  Serious: Yes (Hospitalization)
  Sender: FDA-Public Use
  Company Number: FR-PFIZER INC-2020172512

PATIENT
  Age: 11 Year
  Sex: Male
  Weight: 56.24 kg

DRUGS (5)
  1. AMSALYO [Suspect]
     Active Substance: AMSACRINE
     Indication: ACUTE MYELOID LEUKAEMIA
     Dosage: UNK
     Route: 041
     Dates: start: 20151112, end: 20151115
  2. MITOXANTRONE [Suspect]
     Active Substance: MITOXANTRONE HYDROCHLORIDE
     Indication: ACUTE MYELOID LEUKAEMIA
     Dosage: 19 MG, 1X/DAY
     Route: 041
     Dates: start: 20150928, end: 20151002
  3. CYTARABINE. [Suspect]
     Active Substance: CYTARABINE
     Indication: ACUTE MYELOID LEUKAEMIA
     Dosage: 30 MG, SINGLE
     Route: 037
     Dates: start: 20150928, end: 20150928
  4. METHOTREXATE SODIUM. [Suspect]
     Active Substance: METHOTREXATE SODIUM
     Indication: ACUTE MYELOID LEUKAEMIA
     Dosage: 15 MG, SINGLE
     Route: 037
     Dates: start: 20150928, end: 20150928
  5. CYTARABINE. [Suspect]
     Active Substance: CYTARABINE
     Dosage: UNK
     Route: 041
     Dates: start: 20150928, end: 20151115

REACTIONS (1)
  - Ejection fraction decreased [Recovered/Resolved]

NARRATIVE: CASE EVENT DATE: 20151207
